FAERS Safety Report 17190076 (Version 1)
Quarter: 2019Q4

REPORT INFORMATION
  Report Type: Spontaneous
  Country: US (occurrence: US)
  Receive Date: 20191223
  Receipt Date: 20191223
  Transmission Date: 20200122
  Serious: No
  Sender: FDA-Public Use
  Company Number: US-009507513-1912USA004356

PATIENT
  Sex: Female

DRUGS (10)
  1. ACITRETIN. [Concomitant]
     Active Substance: ACITRETIN
  2. METFORMIN [Concomitant]
     Active Substance: METFORMIN HYDROCHLORIDE
  3. IMIQUIMOD. [Concomitant]
     Active Substance: IMIQUIMOD
  4. TRESIBA [Concomitant]
     Active Substance: INSULIN DEGLUDEC
  5. INTRON A [Suspect]
     Active Substance: INTERFERON ALFA-2B
     Indication: CARCINOID TUMOUR
     Dosage: 18 MU, 3 MILLION INTERNATIONAL UNIT, TIW
     Route: 058
     Dates: start: 20190606
  6. TRAZODONE HYDROCHLORIDE. [Concomitant]
     Active Substance: TRAZODONE HYDROCHLORIDE
  7. LOSARTAN POTASSIUM. [Concomitant]
     Active Substance: LOSARTAN POTASSIUM
  8. VENLAFAXINE HYDROCHLORIDE. [Concomitant]
     Active Substance: VENLAFAXINE HYDROCHLORIDE
  9. VICTOZA [Concomitant]
     Active Substance: LIRAGLUTIDE
  10. GLIMEPIRIDE. [Concomitant]
     Active Substance: GLIMEPIRIDE

REACTIONS (2)
  - Nausea [Unknown]
  - Fatigue [Unknown]

NARRATIVE: CASE EVENT DATE: 2019
